FAERS Safety Report 7635937-3 (Version None)
Quarter: 2011Q3

REPORT INFORMATION
  Report Type: 
  Country: None (occurrence: None)
  Receive Date: 20110719
  Receipt Date: 20110705
  Transmission Date: 20111222
  Serious: Yes (Hospitalization)
  Sender: FDA-Public Use
  Company Number: LTI2005A00088

PATIENT
  Age: 46 Year
  Sex: Male

DRUGS (5)
  1. ACTOS [Suspect]
     Indication: TYPE 2 DIABETES MELLITUS
     Dosage: ORAL
     Route: 048
     Dates: start: 20040101
  2. MEDIATOR (BENFLUOREX HYDROCHLORIDE) [Suspect]
     Dosage: 450 MG (150 MG, 3 IN 1 D) ORAL
     Route: 048
  3. COMBIVIR [Suspect]
     Indication: HIV INFECTION
     Dosage: 2 DF (1 DF, 2 IN 1 D), ORAL
     Route: 048
  4. DIAMICRON (GLICLAZIDE) [Suspect]
     Indication: TYPE 2 DIABETES MELLITUS
     Dosage: 120 MG ORAL
     Route: 048
  5. VIRAMUNE [Suspect]
     Indication: HIV INFECTION
     Dosage: 400 MG (200 MG, 2 IN 1 D) ORAL
     Route: 048

REACTIONS (1)
  - MYOCARDIAL INFARCTION [None]
